FAERS Safety Report 9289028 (Version 1)
Quarter: 2013Q2

REPORT INFORMATION
  Report Type: Report from Study
  Country: BR (occurrence: BR)
  Receive Date: 20130514
  Receipt Date: 20130514
  Transmission Date: 20140414
  Serious: Yes (Hospitalization, Other)
  Sender: FDA-Public Use
  Company Number: PHHY2013BR047660

PATIENT
  Age: 84 Year
  Sex: Female
  Weight: 51 kg

DRUGS (5)
  1. EXELON PATCH [Suspect]
     Indication: DEMENTIA ALZHEIMER^S TYPE
     Dosage: 4.6 MG, DAILY (5CM2 PATCH/DAY)
     Route: 062
     Dates: start: 2010
  2. EXELON PATCH [Suspect]
     Dosage: 9.5 MG, DAILY (10CM PATCH/DAY)
     Route: 062
     Dates: start: 2010
  3. PURAN T4 [Concomitant]
     Indication: VITAMIN SUPPLEMENTATION
     Dosage: UNK UKN, UNK
  4. NEXIUM//ESOMEPRAZOLE MAGNESIUM [Concomitant]
     Indication: GASTRITIS PROPHYLAXIS
     Dosage: UNK UKN, UNK
  5. NOVALGINA [Concomitant]
     Indication: PAIN
     Dosage: 20 GTT, PRN

REACTIONS (5)
  - Uterine cancer [Recovered/Resolved]
  - Haemorrhage urinary tract [Recovered/Resolved]
  - Nosocomial infection [Recovered/Resolved]
  - Urinary tract infection [Recovered/Resolved]
  - Confusional state [Unknown]
